FAERS Safety Report 9280072 (Version 1)
Quarter: 2013Q2

REPORT INFORMATION
  Report Type: Spontaneous
  Country: US (occurrence: None)
  Receive Date: 20130507
  Receipt Date: 20130507
  Transmission Date: 20140414
  Serious: Yes (Other)
  Sender: FDA-Public Use
  Company Number: None

PATIENT
  Age: 40 Year
  Sex: Female

DRUGS (1)
  1. XOLAIR 150MG GENENTECH [Suspect]
     Indication: ASTHMA
     Route: 058
     Dates: start: 20130115, end: 20130406

REACTIONS (3)
  - Injection site infection [None]
  - Pruritus [None]
  - Nervousness [None]
